FAERS Safety Report 10611399 (Version 7)
Quarter: 2015Q4

REPORT INFORMATION
  Report Type: Spontaneous
  Country: US (occurrence: US)
  Receive Date: 20141126
  Receipt Date: 20151124
  Transmission Date: 20160304
  Serious: Yes (Hospitalization, Other)
  Sender: FDA-Public Use
  Company Number: US-GLAXOSMITHKLINE-US2014GSK025704

PATIENT
  Age: 68 Year
  Sex: Male

DRUGS (17)
  1. ADVAIR DISKUS [Suspect]
     Active Substance: FLUTICASONE PROPIONATE\SALMETEROL XINAFOATE
     Indication: ASTHMA
     Dosage: 500/50 MCG, BID
     Route: 055
     Dates: start: 2000
  2. ADVAIR DISKUS [Suspect]
     Active Substance: FLUTICASONE PROPIONATE\SALMETEROL XINAFOATE
     Dosage: 250/50 MCGUNK
     Route: 055
  3. SPIRIVA [Concomitant]
     Active Substance: TIOTROPIUM BROMIDE MONOHYDRATE
  4. PROTONIX [Concomitant]
     Active Substance: PANTOPRAZOLE SODIUM
  5. PREDNISONE. [Concomitant]
     Active Substance: PREDNISONE
  6. MIRAPEX [Concomitant]
     Active Substance: PRAMIPEXOLE DIHYDROCHLORIDE
  7. ADVAIR DISKUS [Suspect]
     Active Substance: FLUTICASONE PROPIONATE\SALMETEROL XINAFOATE
     Dosage: UNK
  8. PRADAXA [Concomitant]
     Active Substance: DABIGATRAN ETEXILATE MESYLATE
  9. LISINOPRIL. [Concomitant]
     Active Substance: LISINOPRIL
  10. METFORMIN [Concomitant]
     Active Substance: METFORMIN HYDROCHLORIDE
  11. LASIX [Concomitant]
     Active Substance: FUROSEMIDE
  12. INSULIN [Concomitant]
     Active Substance: INSULIN NOS
  13. FERROUS SULFATE [Concomitant]
     Active Substance: FERROUS SULFATE\FERROUS SULFATE, DRIED
  14. WARFARIN [Concomitant]
     Active Substance: WARFARIN
  15. COREG [Concomitant]
     Active Substance: CARVEDILOL
  16. SPIRONOLACTONE. [Concomitant]
     Active Substance: SPIRONOLACTONE
  17. AMPICILLIN [Concomitant]
     Active Substance: AMPICILLIN

REACTIONS (19)
  - Atrial fibrillation [Unknown]
  - Asthenia [Recovering/Resolving]
  - Heart valve incompetence [Unknown]
  - Drug dose omission [Unknown]
  - Cardiac valve disease [Recovering/Resolving]
  - Mitral valve replacement [Recovering/Resolving]
  - Endocarditis [Recovered/Resolved]
  - Spleen disorder [Unknown]
  - Cardiac failure congestive [Unknown]
  - Cardiac pacemaker insertion [Unknown]
  - Catheterisation cardiac [Unknown]
  - Heart valve operation [Unknown]
  - Haemoglobin decreased [Not Recovered/Not Resolved]
  - Aortic valve replacement [Recovering/Resolving]
  - Hospitalisation [Unknown]
  - Dyspnoea [Recovering/Resolving]
  - Cardiac operation [Unknown]
  - Ill-defined disorder [Recovering/Resolving]
  - Cardioversion [Unknown]

NARRATIVE: CASE EVENT DATE: 2012
